FAERS Safety Report 9721840 (Version 2)
Quarter: 2013Q4

REPORT INFORMATION
  Report Type: Spontaneous
  Country: US (occurrence: US)
  Receive Date: 20131201
  Receipt Date: 20131201
  Transmission Date: 20140711
  Serious: No
  Sender: FDA-Public Use
  Company Number: US-ABBVIE-13P-163-1156707-00

PATIENT
  Sex: Male

DRUGS (3)
  1. ANDROGEL [Suspect]
     Indication: BLOOD TESTOSTERONE DECREASED
     Dosage: HALF OF A DEPRESSION
     Route: 061
  2. ANDROGEL [Suspect]
     Dosage: 20.25 MILLIGRAMS DAILY
     Route: 061
  3. ANDROGEL [Suspect]
     Dosage: 40.5 MILLIGRAMS DAILY
     Route: 061

REACTIONS (5)
  - Increased appetite [Unknown]
  - Drug ineffective [Not Recovered/Not Resolved]
  - Drug administered at inappropriate site [Unknown]
  - Fatigue [Unknown]
  - Off label use [Unknown]
